FAERS Safety Report 22824596 (Version 3)
Quarter: 2024Q4

REPORT INFORMATION
  Report Type: Spontaneous
  Country: CA (occurrence: CA)
  Receive Date: 20230815
  Receipt Date: 20241230
  Transmission Date: 20250115
  Serious: Yes (Other)
  Sender: CIPHER
  Company Number: E2B_06109609/E2B_05736512

PATIENT
  Age: 22 Year
  Sex: Female

DRUGS (8)
  1. TRAMADOL HYDROCHLORIDE [Suspect]
     Active Substance: TRAMADOL HYDROCHLORIDE
     Indication: Neuralgia
  2. ACETAMINOPHEN [Suspect]
     Active Substance: ACETAMINOPHEN
     Indication: Neuralgia
  3. CAPSICUM OLEORESIN [Suspect]
     Active Substance: CAPSICUM OLEORESIN
     Indication: Neuralgia
     Route: 061
  4. GABAPENTIN [Suspect]
     Active Substance: GABAPENTIN
     Indication: Neuralgia
  5. LIDOCAINE [Suspect]
     Active Substance: LIDOCAINE
     Indication: Neuralgia
     Route: 061
  6. LORAZEPAM [Suspect]
     Active Substance: LORAZEPAM
     Indication: Neuralgia
  7. PREGABALIN [Suspect]
     Active Substance: PREGABALIN
     Indication: Neuralgia
  8. WARFARIN [Concomitant]
     Active Substance: WARFARIN
     Indication: Neuralgia

REACTIONS (2)
  - Treatment failure [Unknown]
  - Off label use [Unknown]
